FAERS Safety Report 7356133-3 (Version None)
Quarter: 2011Q1

REPORT INFORMATION
  Report Type: 
  Country: None (occurrence: None)
  Receive Date: 20110316
  Receipt Date: 20110309
  Transmission Date: 20110831
  Serious: Yes (Hospitalization)
  Sender: FDA-Public Use
  Company Number: US-ELI_LILLY_AND_COMPANY-US201103003508

PATIENT
  Age: 33 Year
  Sex: Female

DRUGS (10)
  1. ALBUTEROL [Concomitant]
  2. MOBIC [Concomitant]
  3. DEXLANSOPRAZOLE [Concomitant]
  4. ADVAIR DISKUS 100/50 [Concomitant]
  5. CYMBALTA [Suspect]
     Indication: MAJOR DEPRESSION
     Dosage: 90 MG, DAILY (1/D)
     Dates: end: 20110309
  6. PRIMIDONE [Concomitant]
  7. TRAZODONE [Concomitant]
  8. YAZ                                /06358701/ [Concomitant]
  9. SKELAXIN [Concomitant]
  10. KLONOPIN [Concomitant]

REACTIONS (6)
  - LESION EXCISION [None]
  - GALLBLADDER OPERATION [None]
  - GASTRIC OPERATION [None]
  - PARAESTHESIA [None]
  - FEELING ABNORMAL [None]
  - DRUG WITHDRAWAL SYNDROME [None]
